FAERS Safety Report 15969162 (Version 1)
Quarter: 2019Q1

REPORT INFORMATION
  Report Type: Report from Study
  Country: US (occurrence: US)
  Receive Date: 20190215
  Receipt Date: 20190215
  Transmission Date: 20190418
  Serious: Yes (Other)
  Sender: FDA-Public Use
  Company Number: US-INCYTE CORPORATION-2019IN000454

PATIENT

DRUGS (7)
  1. JAKAFI [Suspect]
     Active Substance: RUXOLITINIB
     Indication: POLYCYTHAEMIA VERA
     Dosage: 5 MG, QD
     Route: 048
     Dates: start: 201604
  2. JAKAFI [Suspect]
     Active Substance: RUXOLITINIB
     Dosage: 5 MG, BID
     Route: 065
     Dates: start: 20161213
  3. JAKAFI [Suspect]
     Active Substance: RUXOLITINIB
     Dosage: 5 MG, QD
     Route: 065
     Dates: start: 20181214
  4. JAKAFI [Suspect]
     Active Substance: RUXOLITINIB
     Dosage: 5 MG, BID
     Route: 065
     Dates: start: 20160608
  5. JAKAFI [Suspect]
     Active Substance: RUXOLITINIB
     Dosage: 5 MG, TID
     Route: 065
     Dates: start: 20160715
  6. ASA [Concomitant]
     Active Substance: ASPIRIN
     Indication: PRODUCT USED FOR UNKNOWN INDICATION
     Dosage: 81 MG, UNK
     Route: 065
     Dates: start: 20120814
  7. FERRALET                           /06603501/ [Concomitant]
     Indication: PRODUCT USED FOR UNKNOWN INDICATION
     Dosage: UNK
     Route: 048

REACTIONS (14)
  - Discomfort [Unknown]
  - Aphasia [Unknown]
  - Herpes virus infection [Unknown]
  - Skin cancer [Unknown]
  - Respiratory tract congestion [Unknown]
  - Swelling of eyelid [Unknown]
  - Hypersensitivity [Unknown]
  - Depression [Unknown]
  - Skin lesion [Unknown]
  - Abdominal tenderness [Unknown]
  - Neuropathy peripheral [Unknown]
  - Nasopharyngitis [Not Recovered/Not Resolved]
  - Oestrogen deficiency [Unknown]
  - Fatigue [Unknown]

NARRATIVE: CASE EVENT DATE: 201604
